FAERS Safety Report 11509313 (Version 1)
Quarter: 2015Q3

REPORT INFORMATION
  Report Type: Spontaneous
  Country: CH (occurrence: CH)
  Receive Date: 20150915
  Receipt Date: 20150915
  Transmission Date: 20151125
  Serious: Yes (Other)
  Sender: FDA-Public Use
  Company Number: CH-GALDERMA-CH15005988

PATIENT
  Age: 33 Year
  Sex: Female

DRUGS (8)
  1. SEBOLOX [Suspect]
     Active Substance: MICONAZOLE NITRATE
     Indication: PRODUCT USED FOR UNKNOWN INDICATION
     Route: 061
     Dates: start: 20150521, end: 20150616
  2. TETRALYSAL [Suspect]
     Active Substance: LYMECYCLINE
     Indication: PRODUCT USED FOR UNKNOWN INDICATION
     Route: 048
     Dates: start: 20150521, end: 20150616
  3. DIFFERIN [Suspect]
     Active Substance: ADAPALENE
     Indication: ACNE
     Route: 061
     Dates: start: 20150512, end: 20150530
  4. HYDROQUINONE. [Suspect]
     Active Substance: HYDROQUINONE
     Indication: SKIN HYPERPIGMENTATION
     Route: 061
     Dates: start: 20150528, end: 20150616
  5. DEXAMETHASON [Suspect]
     Active Substance: DEXAMETHASONE
     Indication: SKIN HYPERPIGMENTATION
     Route: 061
     Dates: start: 20150528, end: 20150616
  6. LUBEX [Concomitant]
     Indication: PRODUCT USED FOR UNKNOWN INDICATION
     Route: 061
     Dates: start: 20150421, end: 20150616
  7. ASCORBIC ACID. [Suspect]
     Active Substance: ASCORBIC ACID
     Indication: SKIN HYPERPIGMENTATION
     Route: 061
     Dates: start: 20150528, end: 20150616
  8. TRETINOIN. [Suspect]
     Active Substance: TRETINOIN
     Indication: SKIN HYPERPIGMENTATION
     Route: 061
     Dates: start: 20150528, end: 20150616

REACTIONS (4)
  - Pregnancy [None]
  - Contraindication to medical treatment [None]
  - Exposure during pregnancy [Unknown]
  - Maternal exposure during pregnancy [None]

NARRATIVE: CASE EVENT DATE: 20150512
